FAERS Safety Report 7442098-2 (Version None)
Quarter: 2011Q2

REPORT INFORMATION
  Report Type: 
  Country: None (occurrence: None)
  Receive Date: 20110428
  Receipt Date: 20101207
  Transmission Date: 20111010
  Serious: Yes (Hospitalization, Other)
  Sender: FDA-Public Use
  Company Number: US-BAYER-201038162NA

PATIENT
  Age: 34 Year
  Sex: Female
  Weight: 73.469 kg

DRUGS (5)
  1. YASMIN [Suspect]
     Indication: ACNE
     Dosage: UNK
     Dates: start: 20051024
  2. YAZ [Suspect]
     Dosage: UNK
     Dates: start: 20060101, end: 20090101
  3. DROSPIRENONE AND ETHINYL ESTRADIOL [Suspect]
     Dosage: UNK
     Dates: start: 20060101, end: 20090101
  4. PRENATAL 1+1 [VIT C,CA+,D3,CU+,B12,B9,FE+,B3,B6,RETINOL,B2,B1,VIT E,ZN [Concomitant]
  5. ZOLOFT [Concomitant]
     Dosage: UNK
     Dates: start: 20051001

REACTIONS (2)
  - INJURY [None]
  - CHOLELITHIASIS [None]
